FAERS Safety Report 10153523 (Version 1)
Quarter: 2014Q2

REPORT INFORMATION
  Report Type: Spontaneous
  Country: US (occurrence: US)
  Receive Date: 20140505
  Receipt Date: 20140505
  Transmission Date: 20141212
  Serious: Yes (Hospitalization, Other)
  Sender: FDA-Public Use
  Company Number: US-GILEAD-2014-0101647

PATIENT
  Age: 63 Year
  Sex: Male

DRUGS (7)
  1. LETAIRIS [Suspect]
     Indication: PULMONARY ARTERIAL HYPERTENSION
     Dosage: 10 MG, QD
     Route: 065
     Dates: start: 20110518
  2. ADCIRCA [Concomitant]
  3. SPIRONOLACTONE [Concomitant]
  4. VICODIN [Concomitant]
  5. ADVIL                              /00109201/ [Concomitant]
  6. ASPIRIN [Concomitant]
  7. NEFAZODONE [Concomitant]

REACTIONS (1)
  - Small intestinal obstruction [Recovered/Resolved]
